FAERS Safety Report 8174721-1 (Version None)
Quarter: 2012Q1

REPORT INFORMATION
  Report Type: 
  Country: None (occurrence: None)
  Receive Date: 20120229
  Receipt Date: 20120111
  Transmission Date: 20120608
  Serious: Yes (Hospitalization)
  Sender: FDA-Public Use
  Company Number: JP-GLAXOSMITHKLINE-B0775034A

PATIENT
  Sex: Male

DRUGS (9)
  1. MEDEPOLIN [Concomitant]
     Dosage: 1.2MG PER DAY
     Route: 048
     Dates: start: 20101115, end: 20111214
  2. LAMICTAL [Suspect]
     Dosage: 50MG PER DAY
     Route: 048
     Dates: start: 20111124, end: 20111206
  3. LAMICTAL [Suspect]
     Dosage: 100MG PER DAY
     Route: 048
     Dates: start: 20111207, end: 20111211
  4. LITHIUM CARBONATE [Concomitant]
     Route: 048
     Dates: start: 20110216
  5. LAMICTAL [Suspect]
     Indication: BIPOLAR DISORDER
     Dosage: 25MG PER DAY
     Route: 048
     Dates: start: 20111109, end: 20111123
  6. PAXIL [Concomitant]
     Dosage: 40MG PER DAY
     Route: 048
     Dates: start: 20100601
  7. ESTAZOLAM [Concomitant]
     Dosage: 2MG PER DAY
     Route: 048
     Dates: start: 20110201
  8. AMOXAPINE [Concomitant]
     Dosage: 25MG PER DAY
     Route: 048
     Dates: start: 20101201
  9. SILECE [Concomitant]
     Dosage: 2MG PER DAY
     Route: 048
     Dates: start: 20110201

REACTIONS (4)
  - RASH [None]
  - PYREXIA [None]
  - PIGMENTATION DISORDER [None]
  - RASH ERYTHEMATOUS [None]
